FAERS Safety Report 10566481 (Version 2)
Quarter: 2015Q1

REPORT INFORMATION
  Report Type: Spontaneous
  Country: US (occurrence: US)
  Receive Date: 20141105
  Receipt Date: 20150108
  Transmission Date: 20150720
  Serious: Yes (Death)
  Sender: FDA-Public Use
  Company Number: US-ELI_LILLY_AND_COMPANY-US201410012476

PATIENT
  Sex: Male
  Weight: 73.7 kg

DRUGS (1)
  1. CYRAMZA [Suspect]
     Active Substance: RAMUCIRUMAB
     Indication: PRODUCT USED FOR UNKNOWN INDICATION
     Dosage: 590 ML, OTHER
     Route: 042
     Dates: start: 20140701, end: 20140730

REACTIONS (1)
  - Malignant neoplasm progression [Fatal]
